FAERS Safety Report 4790781-X (Version None)
Quarter: 2005Q4

REPORT INFORMATION
  Report Type: 
  Country: None (occurrence: None)
  Receive Date: 20051006
  Receipt Date: 20050929
  Transmission Date: 20060501
  Serious: Yes (Disabling)
  Sender: FDA-Public Use
  Company Number: US-MERCK-0510USA00338

PATIENT
  Sex: Female

DRUGS (1)
  1. VIOXX [Suspect]
     Indication: BACK PAIN
     Route: 048

REACTIONS (3)
  - EMOTIONAL DISORDER [None]
  - MYOCARDIAL INFARCTION [None]
  - POLYTRAUMATISM [None]
